FAERS Safety Report 12396599 (Version 1)
Quarter: 2016Q2

REPORT INFORMATION
  Report Type: Spontaneous
  Country: US (occurrence: US)
  Receive Date: 20160524
  Receipt Date: 20160524
  Transmission Date: 20160815
  Serious: Yes (Hospitalization, Other)
  Sender: FDA-Public Use
  Company Number: US-RECKITT BENCKISER HEALTHCARE INT LIMITED-RB-85854-2016

PATIENT
  Age: 71 Year
  Sex: Male

DRUGS (1)
  1. MUCINEX [Suspect]
     Active Substance: GUAIFENESIN
     Indication: PRODUCT USED FOR UNKNOWN INDICATION
     Dosage: UNK
     Route: 048
     Dates: start: 20160514

REACTIONS (4)
  - Choking [Unknown]
  - Pharyngitis [Unknown]
  - Product difficult to swallow [Unknown]
  - Retching [Unknown]

NARRATIVE: CASE EVENT DATE: 201605
